FAERS Safety Report 4374181-2 (Version None)
Quarter: 2004Q2

REPORT INFORMATION
  Report Type: 
  Country: None (occurrence: None)
  Receive Date: 20040608
  Receipt Date: 20040608
  Transmission Date: 20050107
  Serious: Yes (Other)
  Sender: FDA-Public Use
  Company Number: None

PATIENT
  Age: 9 Month
  Sex: Male
  Weight: 8.9 kg

DRUGS (1)
  1. NORTRYPTYLINE  10MG/ 5ML [Suspect]
     Indication: RENAL DISORDER
     Dosage: 5 MG QHS
     Dates: start: 20040527, end: 20040607

REACTIONS (1)
  - MEDICATION ERROR [None]
